FAERS Safety Report 4366920-1 (Version None)
Quarter: 2004Q2

REPORT INFORMATION
  Report Type: 
  Country: None (occurrence: None)
  Receive Date: 20040528
  Receipt Date: 20020115
  Transmission Date: 20050107
  Serious: Yes (Life-Threatening, Hospitalization)
  Sender: FDA-Public Use
  Company Number: US-BRISTOL-MYERS SQUIBB COMPANY-11673829

PATIENT
  Age: 41 Year
  Sex: Female

DRUGS (6)
  1. TEQUIN [Suspect]
     Indication: URINARY TRACT INFECTION
     Route: 048
     Dates: start: 20011211, end: 20011214
  2. TEQUIN [Suspect]
     Indication: COUGH
     Route: 048
     Dates: start: 20011211, end: 20011214
  3. TEQUIN [Suspect]
     Indication: BACK PAIN
     Route: 048
     Dates: start: 20011211, end: 20011214
  4. TEQUIN [Suspect]
     Indication: PYREXIA
     Route: 048
     Dates: start: 20011211, end: 20011214
  5. TEQUIN [Suspect]
     Indication: NAUSEA
     Route: 048
     Dates: start: 20011211, end: 20011214
  6. CIPRO [Suspect]
     Indication: URINARY TRACT INFECTION
     Route: 048
     Dates: start: 20011201, end: 20011211

REACTIONS (9)
  - BILIARY TRACT DISORDER [None]
  - HEPATIC FIBROSIS [None]
  - HEPATIC STEATOSIS [None]
  - HEPATITIS CHOLESTATIC [None]
  - HEPATOCELLULAR DAMAGE [None]
  - LUNG INFILTRATION [None]
  - PANCREATIC INJURY [None]
  - PANCREATITIS ACUTE [None]
  - RASH [None]
